FAERS Safety Report 16422652 (Version 1)
Quarter: 2019Q2

REPORT INFORMATION
  Report Type: Spontaneous
  Country: US (occurrence: US)
  Receive Date: 20190612
  Receipt Date: 20190612
  Transmission Date: 20190711
  Serious: Yes (Other)
  Sender: FDA-Public Use
  Company Number: US-SA-2017SA262409

PATIENT
  Age: 51 Year
  Sex: Female
  Weight: 70.3 kg

DRUGS (10)
  1. ADRIAMYCIN [Concomitant]
     Active Substance: DOXORUBICIN HYDROCHLORIDE
  2. TAXOTERE [Suspect]
     Active Substance: DOCETAXEL
     Indication: BREAST CANCER FEMALE
     Dosage: 142 MG,Q3W
     Route: 042
     Dates: start: 20120120, end: 20120120
  3. ACETAMINOPHEN. [Concomitant]
     Active Substance: ACETAMINOPHEN
  4. METHOTREXATE. [Concomitant]
     Active Substance: METHOTREXATE
  5. NEOSAR [Concomitant]
     Active Substance: CYCLOPHOSPHAMIDE
     Dosage: UNK
  6. TAXOTERE [Suspect]
     Active Substance: DOCETAXEL
     Dosage: 142 MG,Q3W
     Route: 042
     Dates: start: 20120513, end: 20120513
  7. CYTOXAN [Concomitant]
     Active Substance: CYCLOPHOSPHAMIDE
  8. MORPHINE [Concomitant]
     Active Substance: MORPHINE
  9. BUPROPION. [Concomitant]
     Active Substance: BUPROPION
  10. AMITRIPTYLINE [Concomitant]
     Active Substance: AMITRIPTYLINE
     Dosage: UNK

REACTIONS (2)
  - Alopecia [Recovering/Resolving]
  - Psychological trauma [Unknown]

NARRATIVE: CASE EVENT DATE: 201210
